FAERS Safety Report 5505672-6 (Version None)
Quarter: 2007Q4

REPORT INFORMATION
  Report Type: 
  Country: None (occurrence: None)
  Receive Date: 20071102
  Receipt Date: 20071023
  Transmission Date: 20080405
  Serious: Yes (Other)
  Sender: FDA-Public Use
  Company Number: FR-PFIZER INC-2007075984

PATIENT
  Sex: Female
  Weight: 51.5 kg

DRUGS (3)
  1. CHAMPIX [Suspect]
     Indication: SMOKING CESSATION THERAPY
     Route: 048
  2. MAGNESIUM CARBONATE [Concomitant]
     Indication: MUSCLE SPASMS
     Route: 048
     Dates: start: 20070724, end: 20070824
  3. CARBOLEVURE [Concomitant]
     Indication: FLATULENCE
     Route: 048
     Dates: start: 20070724, end: 20070804

REACTIONS (1)
  - RAYNAUD'S PHENOMENON [None]
